FAERS Safety Report 26177552 (Version 1)
Quarter: 2025Q4

REPORT INFORMATION
  Report Type: Spontaneous
  Country: US (occurrence: US)
  Receive Date: 20251219
  Receipt Date: 20251219
  Transmission Date: 20260117
  Serious: No
  Sender: MERCK SHARP & DOHME LLC
  Company Number: US-009507513-2356177

PATIENT
  Sex: Female
  Weight: 53.5 kg

DRUGS (12)
  1. WINREVAIR [Suspect]
     Active Substance: SOTATERCEPT-CSRK
     Indication: Product used for unknown indication
     Route: 058
     Dates: start: 2025
  2. WINREVAIR [Suspect]
     Active Substance: SOTATERCEPT-CSRK
  3. WINREVAIR [Suspect]
     Active Substance: SOTATERCEPT-CSRK
  4. WINREVAIR [Suspect]
     Active Substance: SOTATERCEPT-CSRK
  5. REMODULIN [Suspect]
     Active Substance: TREPROSTINIL
     Indication: Pulmonary arterial hypertension
     Dosage: DOSE 0.016  G/KG (SELF-FILL CASSETTE WITH 3 ML; RATE OF 52 MCL PER HOUR), CONTINUING
     Route: 058
     Dates: start: 20250812
  6. TADALAFIL [Concomitant]
     Active Substance: TADALAFIL
  7. FUROSEMIDE [Concomitant]
     Active Substance: FUROSEMIDE
  8. SODIUM CHLORIDE [Concomitant]
     Active Substance: SODIUM CHLORIDE
  9. ELIQUIS [Concomitant]
     Active Substance: APIXABAN
  10. OPSUMIT [Concomitant]
     Active Substance: MACITENTAN
  11. SPIRONOLACTONE [Concomitant]
     Active Substance: SPIRONOLACTONE
  12. OXYGEN [Concomitant]
     Active Substance: OXYGEN

REACTIONS (1)
  - Epistaxis [Unknown]

NARRATIVE: CASE EVENT DATE: 20250101
